FAERS Safety Report 7683968-X (Version None)
Quarter: 2011Q3

REPORT INFORMATION
  Report Type: 
  Country: None (occurrence: None)
  Receive Date: 20110815
  Receipt Date: 20110808
  Transmission Date: 20111222
  Serious: Yes (Other)
  Sender: FDA-Public Use
  Company Number: US-CEPHALON-2011004178

PATIENT
  Sex: Male

DRUGS (5)
  1. NUVIGIL [Suspect]
     Route: 048
  2. SEROQUEL [Concomitant]
  3. VIAGRA [Concomitant]
  4. NUVIGIL [Suspect]
     Indication: CIRCADIAN RHYTHM SLEEP DISORDER
     Route: 048
     Dates: start: 20110221
  5. WELLBUTRIN [Concomitant]

REACTIONS (9)
  - MOOD ALTERED [None]
  - CONTUSION [None]
  - BLOOD KETONE BODY [None]
  - RHABDOMYOLYSIS [None]
  - HALLUCINATION, AUDITORY [None]
  - INTENTIONAL OVERDOSE [None]
  - INSOMNIA [None]
  - CONFUSIONAL STATE [None]
  - HALLUCINATION, VISUAL [None]
